FAERS Safety Report 6796069-X (Version None)
Quarter: 2010Q2

REPORT INFORMATION
  Report Type: 
  Country: None (occurrence: None)
  Receive Date: 20100625
  Receipt Date: 20100617
  Transmission Date: 20101027
  Serious: Yes (Other)
  Sender: FDA-Public Use
  Company Number: US-JNJCH-2010014777

PATIENT
  Age: 73 Year
  Sex: Female
  Weight: 72.6 kg

DRUGS (1)
  1. BENADRYL D SOLUTION [Suspect]
     Indication: HYPERSENSITIVITY
     Dosage: TEXT:2 TABLETS ONE TIME
     Route: 048

REACTIONS (4)
  - DIZZINESS [None]
  - FALL [None]
  - LIMB INJURY [None]
  - LOSS OF CONSCIOUSNESS [None]
